FAERS Safety Report 23961078 (Version 2)
Quarter: 2024Q3

REPORT INFORMATION
  Report Type: Spontaneous
  Country: US (occurrence: US)
  Receive Date: 20240611
  Receipt Date: 20240922
  Transmission Date: 20241017
  Serious: No
  Sender: SANOFI AVENTIS
  Company Number: US-SA-SAC20240607000777

PATIENT
  Age: 23 Year
  Sex: Female

DRUGS (1)
  1. DUPIXENT [Suspect]
     Active Substance: DUPILUMAB
     Indication: Dermatitis atopic
     Dosage: 300 MG, QOW
     Route: 058

REACTIONS (7)
  - Pruritus [Unknown]
  - Skin ulcer [Unknown]
  - Scratch [Unknown]
  - Dry skin [Unknown]
  - Injection site bruising [Recovered/Resolved]
  - Dry eye [Unknown]
  - Eye pruritus [Unknown]
